FAERS Safety Report 24673823 (Version 2)
Quarter: 2024Q4

REPORT INFORMATION
  Report Type: Report from Study
  Country: US (occurrence: US)
  Receive Date: 20241128
  Receipt Date: 20241218
  Transmission Date: 20250115
  Serious: No
  Sender: ABBVIE
  Company Number: US-ABBVIE-6022210

PATIENT
  Sex: Female

DRUGS (1)
  1. BOTOX [Suspect]
     Active Substance: ONABOTULINUMTOXINA
     Indication: Multiple sclerosis
     Dosage: TIME INTERVAL: AS NECESSARY
     Route: 065
     Dates: start: 202409, end: 202409

REACTIONS (1)
  - Off label use [Unknown]
